FAERS Safety Report 4597419-5 (Version None)
Quarter: 2005Q1

REPORT INFORMATION
  Report Type: 
  Country: None (occurrence: None)
  Receive Date: 20050303
  Receipt Date: 20050224
  Transmission Date: 20050727
  Serious: Yes (Congenital Anomaly)
  Sender: FDA-Public Use
  Company Number: PHBS2005BR02896

PATIENT

DRUGS (2)
  1. VACCINES [Concomitant]
  2. FORASEQ [Suspect]
     Route: 064

REACTIONS (3)
  - CONGENITAL HAND MALFORMATION [None]
  - DRUG EXPOSURE DURING PREGNANCY [None]
  - RENAL DISORDER [None]
